FAERS Safety Report 12681348 (Version 1)
Quarter: 2016Q3

REPORT INFORMATION
  Report Type: Spontaneous
  Country: US (occurrence: US)
  Receive Date: 20160824
  Receipt Date: 20160824
  Transmission Date: 20161109
  Serious: No
  Sender: FDA-Public Use
  Company Number: US-SHIRE-US201610841

PATIENT
  Age: 87 Year
  Sex: Female
  Weight: 62.59 kg

DRUGS (1)
  1. LIALDA [Suspect]
     Active Substance: MESALAMINE
     Indication: IRRITABLE BOWEL SYNDROME
     Dosage: 4.8 MG, 1X/DAY:QD
     Dates: start: 201511

REACTIONS (5)
  - Product use issue [Not Recovered/Not Resolved]
  - Thinking abnormal [Unknown]
  - Alopecia [Not Recovered/Not Resolved]
  - Fatigue [Unknown]
  - Hypoacusis [Unknown]

NARRATIVE: CASE EVENT DATE: 201511
